FAERS Safety Report 4601012-5 (Version None)
Quarter: 2005Q1

REPORT INFORMATION
  Report Type: 
  Country: None (occurrence: None)
  Receive Date: 20050127
  Receipt Date: 20041110
  Transmission Date: 20050727
  Serious: No
  Sender: FDA-Public Use
  Company Number: USA041183736

PATIENT
  Age: 37 Year
  Sex: Male
  Weight: 82 kg

DRUGS (4)
  1. STRATTERA [Suspect]
     Indication: ATTENTION DEFICIT/HYPERACTIVITY DISORDER
     Dosage: 40 MG DAY
     Dates: start: 20041103
  2. WELLBUTRIN [Concomitant]
  3. LAMICTAL [Concomitant]
  4. MULTI-VITAMIN [Concomitant]

REACTIONS (10)
  - DECREASED APPETITE [None]
  - DRY MOUTH [None]
  - EPIGASTRIC DISCOMFORT [None]
  - ERECTILE DYSFUNCTION [None]
  - HEART RATE INCREASED [None]
  - IRRITABILITY [None]
  - ORGASMIC SENSATION DECREASED [None]
  - SOMNOLENCE [None]
  - URINARY HESITATION [None]
  - URINE FLOW DECREASED [None]
